FAERS Safety Report 5606703-5 (Version None)
Quarter: 2008Q1

REPORT INFORMATION
  Report Type: 
  Country: None (occurrence: None)
  Receive Date: 20080129
  Receipt Date: 20070309
  Transmission Date: 20080703
  Serious: No
  Sender: FDA-Public Use
  Company Number: US-BAUSCH-2007BL000769

PATIENT
  Age: 96 Year
  Sex: Male

DRUGS (2)
  1. NEOMYCIN AND POLYMYXIN B SULFATES AND GRAMICIDIN OPHTHALMIC SOLUTION [Suspect]
     Indication: EYE INFECTION
     Route: 047
     Dates: start: 20070216, end: 20070308
  2. NEOMYCIN AND POLYMYXIN B SULFATES AND GRAMICIDIN OPHTHALMIC SOLUTION [Suspect]
     Indication: LACRIMATION INCREASED
     Route: 047
     Dates: start: 20070216, end: 20070308

REACTIONS (5)
  - DRUG INEFFECTIVE [None]
  - EYE DISCHARGE [None]
  - EYE IRRITATION [None]
  - INAPPROPRIATE SCHEDULE OF DRUG ADMINISTRATION [None]
  - TREATMENT NONCOMPLIANCE [None]
